FAERS Safety Report 20933448 (Version 3)
Quarter: 2022Q3

REPORT INFORMATION
  Report Type: Spontaneous
  Country: CA (occurrence: CA)
  Receive Date: 20220608
  Receipt Date: 20220922
  Transmission Date: 20221027
  Serious: Yes (Hospitalization, Other)
  Sender: FDA-Public Use
  Company Number: CA-SAMSUNG BIOEPIS-SB-2022-13659

PATIENT
  Age: 39 Year
  Sex: Male
  Weight: 104 kg

DRUGS (1)
  1. INFLIXIMAB [Suspect]
     Active Substance: INFLIXIMAB
     Indication: Crohn^s disease
     Route: 042

REACTIONS (16)
  - Abdominal pain [Unknown]
  - Abscess [Unknown]
  - Anal fissure [Unknown]
  - Arthralgia [Unknown]
  - Clostridium difficile colitis [Unknown]
  - Clostridium difficile infection [Unknown]
  - Colitis [Unknown]
  - Colitis ulcerative [Unknown]
  - Condition aggravated [Unknown]
  - Diarrhoea [Unknown]
  - Erythema nodosum [Unknown]
  - Heart rate increased [Unknown]
  - Product prescribing issue [Unknown]
  - Intentional product use issue [Unknown]
  - Inappropriate schedule of product administration [Unknown]
  - Off label use [Unknown]
